FAERS Safety Report 10240882 (Version 1)
Quarter: 2014Q2

REPORT INFORMATION
  Report Type: Spontaneous
  Country: FR (occurrence: None)
  Receive Date: 20140613
  Receipt Date: 20140613
  Transmission Date: 20141212
  Serious: Yes (Other)
  Sender: FDA-Public Use
  Company Number: SYM-2014-21755

PATIENT
  Age: 48 Year
  Sex: Male

DRUGS (1)
  1. MONO TILDIEM [Suspect]
     Indication: HYPERTENSION
     Route: 048
     Dates: start: 2010, end: 201401

REACTIONS (8)
  - Erectile dysfunction [None]
  - Overweight [None]
  - Abdominal distension [None]
  - Dyspnoea [None]
  - Erectile dysfunction [None]
  - Joint swelling [None]
  - Local swelling [None]
  - Local swelling [None]
